FAERS Safety Report 18969669 (Version 1)
Quarter: 2021Q1

REPORT INFORMATION
  Report Type: Spontaneous
  Country: FR (occurrence: FR)
  Receive Date: 20210304
  Receipt Date: 20210304
  Transmission Date: 20210420
  Serious: Yes (Other)
  Sender: FDA-Public Use
  Company Number: FR-UCBSA-2021009453

PATIENT
  Age: 42 Year
  Sex: Male
  Weight: 68 kg

DRUGS (5)
  1. VIMPAT [Suspect]
     Active Substance: LACOSAMIDE
     Indication: STATUS EPILEPTICUS
     Dosage: 400 MG DAILY
     Route: 048
     Dates: start: 20201229
  2. FYCOMPA [Suspect]
     Active Substance: PERAMPANEL
     Indication: STATUS EPILEPTICUS
     Dosage: 4 MG DAILY
     Route: 048
     Dates: start: 20210105
  3. KETAMINE [Suspect]
     Active Substance: KETAMINE
     Indication: STATUS EPILEPTICUS
     Dosage: 200MG/H
     Route: 041
     Dates: start: 20210104, end: 20210113
  4. RIXATHON [Suspect]
     Active Substance: RITUXIMAB
     Indication: ENCEPHALITIS AUTOIMMUNE
     Dosage: 1000 MG
     Route: 041
     Dates: start: 20210108, end: 20210108
  5. LEVETIRACETAM MYLAN [Suspect]
     Active Substance: LEVETIRACETAM
     Indication: STATUS EPILEPTICUS
     Dosage: 2000 MG DAILY
     Route: 041
     Dates: start: 20210101, end: 20210113

REACTIONS (5)
  - Product use in unapproved indication [Unknown]
  - Hepatocellular injury [Not Recovered/Not Resolved]
  - Condition aggravated [Not Recovered/Not Resolved]
  - Cholestasis [Not Recovered/Not Resolved]
  - Jaundice [Recovered/Resolved]

NARRATIVE: CASE EVENT DATE: 20201229
